FAERS Safety Report 14126652 (Version 2)
Quarter: 2017Q4

REPORT INFORMATION
  Report Type: Spontaneous
  Country: JP (occurrence: JP)
  Receive Date: 20171025
  Receipt Date: 20171127
  Transmission Date: 20180321
  Serious: Yes (Other)
  Sender: FDA-Public Use
  Company Number: JP-ALLERGAN-1758948US

PATIENT
  Age: 81 Year
  Sex: Male

DRUGS (2)
  1. SILODOSIN - BP [Suspect]
     Active Substance: SILODOSIN
     Indication: BENIGN PROSTATIC HYPERPLASIA
     Dosage: 8 MG, UNK
     Route: 048
     Dates: end: 20170921
  2. SILODOSIN - BP [Suspect]
     Active Substance: SILODOSIN
     Indication: DYSURIA

REACTIONS (5)
  - Fall [Unknown]
  - Loss of consciousness [Unknown]
  - Dysphagia [Unknown]
  - Blood pressure decreased [Unknown]
  - Off label use [Unknown]
